FAERS Safety Report 9531047 (Version 1)
Quarter: 2013Q3

REPORT INFORMATION
  Report Type: Report from Study
  Country: CA (occurrence: CA)
  Receive Date: 20130918
  Receipt Date: 20130918
  Transmission Date: 20140515
  Serious: Yes (Hospitalization)
  Sender: FDA-Public Use
  Company Number: CA-JNJFOC-20130904886

PATIENT
  Age: 76 Year
  Sex: Male
  Weight: 101 kg

DRUGS (2)
  1. REMICADE [Suspect]
     Indication: RHEUMATOID ARTHRITIS
     Dosage: FREQUENCY: ONCE EVERY 6-8 WEEKS
     Route: 042
     Dates: start: 2002
  2. METHOTREXATE [Concomitant]
     Route: 048

REACTIONS (1)
  - Ankle fracture [Recovered/Resolved]
